FAERS Safety Report 11195333 (Version 2)
Quarter: 2015Q3

REPORT INFORMATION
  Report Type: Spontaneous
  Country: US (occurrence: US)
  Receive Date: 20150617
  Receipt Date: 20150707
  Transmission Date: 20151125
  Serious: Yes (Death)
  Sender: FDA-Public Use
  Company Number: US-CELGENE-USA-2015062418

PATIENT
  Age: 91 Year
  Sex: Male

DRUGS (1)
  1. POMALYST [Suspect]
     Active Substance: POMALIDOMIDE
     Indication: PLASMA CELL MYELOMA
     Dosage: 4 MILLIGRAM
     Route: 065
     Dates: start: 20140902, end: 20150607

REACTIONS (4)
  - Pneumonia [Fatal]
  - Plasma cell myeloma [Fatal]
  - Anaemia [Fatal]
  - Renal failure [Fatal]

NARRATIVE: CASE EVENT DATE: 20150608
